FAERS Safety Report 17413214 (Version 1)
Quarter: 2020Q1

REPORT INFORMATION
  Report Type: Other
  Country: CA (occurrence: CA)
  Receive Date: 20200213
  Receipt Date: 20200213
  Transmission Date: 20200409
  Serious: Yes (Other)
  Sender: FDA-Public Use
  Company Number: CA-USP-000053

PATIENT
  Age: 74 Year

DRUGS (3)
  1. NITROGLYCERIN. [Suspect]
     Active Substance: NITROGLYCERIN
     Indication: AORTIC STENOSIS
     Route: 041
  2. NITROGLYCERIN. [Suspect]
     Active Substance: NITROGLYCERIN
     Indication: AORTIC STENOSIS
     Route: 065
  3. NITROGLYCERIN. [Suspect]
     Active Substance: NITROGLYCERIN
     Indication: AORTIC STENOSIS
     Route: 060

REACTIONS (2)
  - Cardiac arrest [Unknown]
  - Hypotension [Unknown]
